FAERS Safety Report 7628152-0 (Version None)
Quarter: 2011Q3

REPORT INFORMATION
  Report Type: 
  Country: None (occurrence: None)
  Receive Date: 20110720
  Receipt Date: 20110720
  Transmission Date: 20111222
  Serious: Yes (Hospitalization)
  Sender: FDA-Public Use
  Company Number: None

PATIENT
  Sex: Female
  Weight: 61.9 kg

DRUGS (1)
  1. MITOMYCIN [Suspect]
     Dosage: 17.2 MG
     Dates: end: 20110707

REACTIONS (8)
  - HAEMATEMESIS [None]
  - UPPER GASTROINTESTINAL HAEMORRHAGE [None]
  - HAEMOGLOBIN DECREASED [None]
  - PAIN [None]
  - MALLORY-WEISS SYNDROME [None]
  - HELICOBACTER INFECTION [None]
  - NAUSEA [None]
  - VOMITING [None]
